FAERS Safety Report 20139111 (Version 20)
Quarter: 2025Q1

REPORT INFORMATION
  Report Type: Report from Study
  Country: CO (occurrence: CO)
  Receive Date: 20211202
  Receipt Date: 20250217
  Transmission Date: 20250409
  Serious: Yes (Other)
  Sender: ROCHE
  Company Number: CO-002147023-NVSC2021CO254246

PATIENT
  Age: 36 Year
  Sex: Female
  Weight: 57.0 kg

DRUGS (18)
  1. XOLAIR [Suspect]
     Active Substance: OMALIZUMAB
     Indication: Idiopathic urticaria
     Dosage: 300 MG, QMO
     Route: 058
     Dates: start: 202104
  2. XOLAIR [Suspect]
     Active Substance: OMALIZUMAB
     Indication: Urticaria
     Dosage: 300 MG, QMO
     Route: 058
     Dates: start: 202105, end: 202111
  3. XOLAIR [Suspect]
     Active Substance: OMALIZUMAB
     Indication: Chronic spontaneous urticaria
     Dosage: 450 MG, QMO
     Route: 058
     Dates: start: 202111
  4. XOLAIR [Suspect]
     Active Substance: OMALIZUMAB
     Route: 058
  5. XOLAIR [Suspect]
     Active Substance: OMALIZUMAB
     Route: 058
  6. XOLAIR [Suspect]
     Active Substance: OMALIZUMAB
     Dosage: 300 MG, BIW
     Route: 058
  7. XOLAIR [Suspect]
     Active Substance: OMALIZUMAB
     Dosage: 300 MG, EVERY 15 DAYS
     Route: 058
     Dates: start: 202208
  8. XOLAIR [Suspect]
     Active Substance: OMALIZUMAB
     Dosage: 600 MG, BIW
     Route: 058
  9. XOLAIR [Suspect]
     Active Substance: OMALIZUMAB
     Route: 058
  10. XOLAIR [Suspect]
     Active Substance: OMALIZUMAB
     Route: 058
  11. XOLAIR [Suspect]
     Active Substance: OMALIZUMAB
     Dosage: UNK UNK, BIW
     Route: 058
     Dates: start: 20230614
  12. XOLAIR [Suspect]
     Active Substance: OMALIZUMAB
     Dosage: UNK UNK, BIW
     Route: 058
     Dates: start: 20230905
  13. XOLAIR [Suspect]
     Active Substance: OMALIZUMAB
     Route: 058
  14. XOLAIR [Suspect]
     Active Substance: OMALIZUMAB
     Dosage: 600 MG, Q2W
     Route: 058
     Dates: start: 20210504
  15. XOLAIR [Suspect]
     Active Substance: OMALIZUMAB
     Route: 058
     Dates: start: 20240719
  16. XOLAIR [Suspect]
     Active Substance: OMALIZUMAB
     Route: 058
  17. BILASTINE [Concomitant]
     Active Substance: BILASTINE
     Indication: Product used for unknown indication
     Dosage: 20 MG, Q12H (UNMODIFIED LIBERATION TABLETS)
     Route: 048
  18. BILASTINE [Concomitant]
     Active Substance: BILASTINE

REACTIONS (23)
  - Injection site erythema [Recovered/Resolved]
  - Drug effect less than expected [Unknown]
  - Incorrect dose administered [Unknown]
  - Injection site inflammation [Recovered/Resolved]
  - Injection site erythema [Not Recovered/Not Resolved]
  - Condition aggravated [Unknown]
  - Injection site urticaria [Recovered/Resolved]
  - Injection site pruritus [Recovered/Resolved]
  - Injection site inflammation [Recovered/Resolved]
  - Inappropriate schedule of product administration [Unknown]
  - Off label use [Unknown]
  - Urticaria chronic [Not Recovered/Not Resolved]
  - Stomatitis [Not Recovered/Not Resolved]
  - Cheilitis [Not Recovered/Not Resolved]
  - Angioedema [Unknown]
  - Malaise [Not Recovered/Not Resolved]
  - Product dose omission issue [Unknown]
  - Pruritus [Not Recovered/Not Resolved]
  - Inflammation [Not Recovered/Not Resolved]
  - Pain [Not Recovered/Not Resolved]
  - Hypersensitivity [Not Recovered/Not Resolved]
  - Product prescribing error [Unknown]
  - Urticaria [Not Recovered/Not Resolved]

NARRATIVE: CASE EVENT DATE: 20221101
